FAERS Safety Report 5691916-7 (Version None)
Quarter: 2008Q1

REPORT INFORMATION
  Report Type: 
  Country: None (occurrence: None)
  Receive Date: 20080331
  Receipt Date: 20080320
  Transmission Date: 20080703
  Serious: Yes (Death)
  Sender: FDA-Public Use
  Company Number: 2008-00591

PATIENT
  Age: 51 Year
  Sex: Female
  Weight: 55 kg

DRUGS (10)
  1. VELCADE [Suspect]
     Indication: MULTIPLE MYELOMA
     Dosage: 1.91 MG UNK INTRAVENOUS
     Route: 042
     Dates: start: 20071107, end: 20071213
  2. SULFAMETHOXAZOLE [Suspect]
     Indication: PROPHYLAXIS
     Dosage: 1.00 DF UNK ORAL
     Route: 048
     Dates: start: 20070816, end: 20080122
  3. PROTECADIN                  (LAFUTIDINE) [Concomitant]
  4. LAMIVUDINE [Concomitant]
  5. OXYCONTIN [Concomitant]
  6. CEFZON       (CEFDINIR) [Concomitant]
  7. CALONAL     (PARACETAMOL) [Concomitant]
  8. LAXOPERON            (SODIUM PICOSULFATE) [Concomitant]
  9. ROCEPHIN [Concomitant]
  10. ZOMETA [Concomitant]

REACTIONS (15)
  - ANAEMIA [None]
  - BLOOD ALBUMIN DECREASED [None]
  - BLOOD LACTATE DEHYDROGENASE INCREASED [None]
  - BLOOD SODIUM DECREASED [None]
  - C-REACTIVE PROTEIN INCREASED [None]
  - DISEASE PROGRESSION [None]
  - HEPATIC FUNCTION ABNORMAL [None]
  - HYPERCALCAEMIA [None]
  - LYMPHOCYTE COUNT DECREASED [None]
  - MULTIPLE MYELOMA [None]
  - NEUTROPHIL COUNT DECREASED [None]
  - PLATELET COUNT DECREASED [None]
  - PROTEIN TOTAL INCREASED [None]
  - PYREXIA [None]
  - WHITE BLOOD CELL COUNT DECREASED [None]
